FAERS Safety Report 24437690 (Version 1)
Quarter: 2024Q4

REPORT INFORMATION
  Report Type: Spontaneous
  Country: US (occurrence: None)
  Receive Date: 20241014
  Receipt Date: 20241014
  Transmission Date: 20250115
  Serious: Yes (Death, Hospitalization)
  Sender: Public
  Company Number: None

PATIENT
  Age: 71 Year
  Sex: Female

DRUGS (16)
  1. AMBRISENTAN [Suspect]
     Active Substance: AMBRISENTAN
     Indication: Pulmonary arterial hypertension
     Dosage: FREQUENCY : DAILY;?
     Route: 048
     Dates: start: 20210729, end: 20241005
  2. AMBRISENTAN [Suspect]
     Active Substance: AMBRISENTAN
     Indication: Heritable pulmonary arterial hypertension
  3. TADALAFIL [Concomitant]
  4. REMODULIN [Concomitant]
     Active Substance: TREPROSTINIL
  5. FAMOTIDINE [Concomitant]
  6. AMLODIPINE [Concomitant]
  7. SPIRONOLACTONE [Concomitant]
  8. ATORVASTATIN [Concomitant]
  9. FUROSEMIDE [Concomitant]
  10. CELLCEPT [Concomitant]
     Active Substance: MYCOPHENOLATE MOFETIL
  11. PILOCARPINE [Concomitant]
  12. PANTOPRAZOLE [Concomitant]
  13. ASPIRIN [Concomitant]
  14. MVI-MINERALS [Concomitant]
  15. ASCORBIC ACID\IRON [Concomitant]
     Active Substance: ASCORBIC ACID\IRON
  16. MAGNESIUM [Concomitant]

REACTIONS (3)
  - Pneumonia [None]
  - Acute respiratory failure [None]
  - Respiratory failure [None]

NARRATIVE: CASE EVENT DATE: 20240927
